FAERS Safety Report 12981419 (Version 4)
Quarter: 2017Q1

REPORT INFORMATION
  Report Type: Spontaneous
  Country: JP (occurrence: JP)
  Receive Date: 20161129
  Receipt Date: 20170103
  Transmission Date: 20170428
  Serious: Yes (Hospitalization, Other)
  Sender: FDA-Public Use
  Company Number: JP-UCBSA-2016044557

PATIENT
  Age: 79 Year
  Sex: Female

DRUGS (6)
  1. XYZAL [Suspect]
     Active Substance: LEVOCETIRIZINE DIHYDROCHLORIDE
     Indication: PRURITUS
     Dosage: 10 MG, ONCE DAILY (QD)
     Route: 048
     Dates: start: 20161109, end: 20161118
  2. BONALON [Suspect]
     Active Substance: ALENDRONATE SODIUM
     Indication: OSTEOPOROSIS
     Dosage: UNK
     Route: 048
     Dates: end: 20161117
  3. AZUNOL [Concomitant]
     Active Substance: SODIUM GUALENATE
     Indication: PRODUCT USED FOR UNKNOWN INDICATION
     Dosage: UNK
  4. ALENDRONATE SODIUM. [Concomitant]
     Active Substance: ALENDRONATE SODIUM
     Indication: OSTEOPOROSIS
     Dosage: UNK
     Dates: end: 20161118
  5. PREDNISOLONE. [Concomitant]
     Active Substance: PREDNISOLONE
     Indication: PRODUCT USED FOR UNKNOWN INDICATION
     Dosage: UNK
     Dates: start: 20161120
  6. METHYLPREDNISOLONE. [Concomitant]
     Active Substance: METHYLPREDNISOLONE
     Indication: PRODUCT USED FOR UNKNOWN INDICATION
     Dosage: 250 MG/DAY
     Dates: start: 201611

REACTIONS (10)
  - Diarrhoea [Unknown]
  - Ocular hyperaemia [Unknown]
  - Generalised erythema [Recovering/Resolving]
  - Oral mucosa erosion [Unknown]
  - Cutaneous symptom [Unknown]
  - Vulval disorder [Unknown]
  - Mucous membrane disorder [Unknown]
  - Stevens-Johnson syndrome [Recovering/Resolving]
  - Ecchymosis [Unknown]
  - Pruritus [Unknown]

NARRATIVE: CASE EVENT DATE: 201611
